FAERS Safety Report 5520644-3 (Version None)
Quarter: 2007Q4

REPORT INFORMATION
  Report Type: 
  Country: None (occurrence: None)
  Receive Date: 20071119
  Receipt Date: 20071113
  Transmission Date: 20080405
  Serious: Yes (Hospitalization)
  Sender: FDA-Public Use
  Company Number: US-BRISTOL-MYERS SQUIBB COMPANY-13373782

PATIENT
  Age: 47 Year
  Sex: Female
  Weight: 110 kg

DRUGS (7)
  1. CETUXIMAB [Suspect]
     Indication: BREAST CANCER METASTATIC
     Dosage: DISCONTINUED OFF STUDY ON 08-MAY-2006
     Dates: start: 20060503, end: 20060503
  2. CARBOPLATIN [Suspect]
     Indication: BREAST CANCER METASTATIC
     Dosage: DISCONTINUED OFF STUDY ON 08-MAY-2006
     Dates: start: 20060503, end: 20060503
  3. IRINOTECAN HCL [Suspect]
     Indication: BREAST CANCER METASTATIC
     Dosage: DISCONTINUED OFF STUDY ON 08-MAY-2006
     Dates: start: 20060405, end: 20060503
  4. ACIPHEX [Concomitant]
     Indication: DYSPEPSIA
     Dates: start: 20021101
  5. LANTUS [Concomitant]
     Indication: DIABETES MELLITUS
     Route: 048
  6. HUMULIN R [Concomitant]
     Indication: DIABETES MELLITUS
     Dosage: DOSAGE FORM = 10 UNITS.
     Route: 058
     Dates: start: 19650101
  7. IMODIUM [Concomitant]
     Indication: DIARRHOEA
     Dosage: DOSAGE FORM = TABS
     Route: 048
     Dates: start: 20060507

REACTIONS (1)
  - DEHYDRATION [None]
